FAERS Safety Report 14035271 (Version 2)
Quarter: 2017Q4

REPORT INFORMATION
  Report Type: Spontaneous
  Country: US (occurrence: US)
  Receive Date: 20171003
  Receipt Date: 20171219
  Transmission Date: 20180321
  Serious: Yes (Hospitalization, Other)
  Sender: FDA-Public Use
  Company Number: US-VIFOR (INTERNATIONAL) INC.-VIT-2017-10066

PATIENT
  Age: 66 Year
  Sex: Female

DRUGS (26)
  1. TERAZOSIN HYDROCHLORIDE. [Concomitant]
     Active Substance: TERAZOSIN HYDROCHLORIDE
  2. SODIUM BICARBONATE. [Concomitant]
     Active Substance: SODIUM BICARBONATE
  3. SODIUM CHLORIDE. [Concomitant]
     Active Substance: SODIUM CHLORIDE
  4. LORATADINE. [Concomitant]
     Active Substance: LORATADINE
     Indication: HYPERSENSITIVITY
  5. LIDOCAINE. [Concomitant]
     Active Substance: LIDOCAINE
  6. WARFARIN SODIUM. [Concomitant]
     Active Substance: WARFARIN SODIUM
  7. CHLOR-TRIMETON ALLERGY [Concomitant]
  8. VELTASSA [Suspect]
     Active Substance: PATIROMER
     Indication: HYPERKALAEMIA
     Route: 048
     Dates: start: 20161026
  9. FLONASE [Concomitant]
     Active Substance: FLUTICASONE PROPIONATE
  10. ENALAPRIL MALEATE. [Concomitant]
     Active Substance: ENALAPRIL MALEATE
  11. MONTELUKAST SODIUM. [Concomitant]
     Active Substance: MONTELUKAST SODIUM
  12. SYSTANE BALANCE [Concomitant]
     Active Substance: PROPYLENE GLYCOL
  13. PRILOSEC [Concomitant]
     Active Substance: OMEPRAZOLE MAGNESIUM
  14. FUROSEMIDE. [Concomitant]
     Active Substance: FUROSEMIDE
  15. CHONDROITIN [Concomitant]
     Active Substance: CHONDROITIN
  16. DOCUSATE SODIUM. [Concomitant]
     Active Substance: DOCUSATE SODIUM
  17. DILTIAZEM HYDROCHLORIDE. [Concomitant]
     Active Substance: DILTIAZEM HYDROCHLORIDE
  18. COLECALCIFEROL [Concomitant]
     Active Substance: CHOLECALCIFEROL
  19. OPCON-A [Concomitant]
     Active Substance: NAPHAZOLINE HYDROCHLORIDE\PHENIRAMINE MALEATE
  20. EUCERIN [Concomitant]
     Active Substance: ENSULIZOLE\EUCERIN\OCTINOXATE\OCTISALATE\TITANIUM DIOXIDE\ZINC OXIDE
  21. CROMOLYN SODIUM. [Concomitant]
     Active Substance: CROMOLYN SODIUM
  22. AZELASTINE HYDROCHLORIDE. [Concomitant]
     Active Substance: AZELASTINE HYDROCHLORIDE
  23. MAGNESIUM HYDROXIDE. [Concomitant]
     Active Substance: MAGNESIUM HYDROXIDE
  24. VALPROATE SEMISODIUM [Concomitant]
     Active Substance: DIVALPROEX SODIUM
  25. NEPHRO-VITE [Concomitant]
  26. GLUCOSAMINE [Concomitant]
     Active Substance: GLUCOSAMINE

REACTIONS (2)
  - Acute kidney injury [Unknown]
  - Fluid overload [Unknown]

NARRATIVE: CASE EVENT DATE: 20171130
